FAERS Safety Report 4418513-5 (Version None)
Quarter: 2004Q3

REPORT INFORMATION
  Report Type: 
  Country: None (occurrence: None)
  Receive Date: 20040809
  Receipt Date: 20040518
  Transmission Date: 20050211
  Serious: No
  Sender: FDA-Public Use
  Company Number: US-GLAXOSMITHKLINE-A0511276A

PATIENT
  Age: 43 Year
  Sex: Male

DRUGS (5)
  1. PAXIL CR [Suspect]
     Dosage: 12.5MG PER DAY
     Route: 048
  2. CORGARD [Concomitant]
  3. ALLEGRA [Concomitant]
  4. MAXZIDE [Concomitant]
  5. IBUPROFEN [Concomitant]

REACTIONS (4)
  - ABNORMAL DREAMS [None]
  - DISORIENTATION [None]
  - DIZZINESS [None]
  - DRUG WITHDRAWAL SYNDROME [None]
